FAERS Safety Report 6293741-5 (Version None)
Quarter: 2009Q3

REPORT INFORMATION
  Report Type: 
  Country: None (occurrence: None)
  Receive Date: 20090729
  Receipt Date: 20090715
  Transmission Date: 20100115
  Serious: No
  Sender: FDA-Public Use
  Company Number: 2009-199611-NL

PATIENT
  Age: 34 Year
  Sex: Female

DRUGS (3)
  1. CHORIONIC GONADOTROPIN [Suspect]
     Dosage: 1500 IU
     Dates: start: 20090501, end: 20090501
  2. CHORIONIC GONADOTROPIN [Suspect]
     Dosage: 1500 IU
     Dates: start: 20090605, end: 20090605
  3. CHORIONIC GONADTROPIN [Suspect]
     Dosage: 500 IU ONCE
     Dates: start: 20090602, end: 20090602

REACTIONS (6)
  - DRUG INEFFECTIVE [None]
  - DRY SKIN [None]
  - ERYTHEMA [None]
  - ORAL HERPES [None]
  - PRURITUS [None]
  - URTICARIA [None]
